FAERS Safety Report 7499313-9 (Version None)
Quarter: 2011Q2

REPORT INFORMATION
  Report Type: 
  Country: None (occurrence: None)
  Receive Date: 20110516
  Receipt Date: 20110505
  Transmission Date: 20111010
  Serious: Yes (Hospitalization)
  Sender: FDA-Public Use
  Company Number: UTC-006309

PATIENT
  Age: 44 Year
  Sex: Female

DRUGS (3)
  1. TRACLEER [Concomitant]
  2. REVATIO (SILDENAFIL CTIRATE) [Concomitant]
  3. TYVASO [Suspect]
     Dosage: 216 MCG (54 MCG,4 IN 1 D),INHALATION
     Route: 055
     Dates: start: 20101112

REACTIONS (1)
  - PLEURAL EFFUSION [None]
